FAERS Safety Report 25059801 (Version 1)
Quarter: 2025Q1

REPORT INFORMATION
  Report Type: Spontaneous
  Country: DE (occurrence: DE)
  Receive Date: 20250310
  Receipt Date: 20250310
  Transmission Date: 20250409
  Serious: Yes (Other)
  Sender: ROCHE
  Company Number: None

PATIENT
  Sex: Male

DRUGS (2)
  1. EMICIZUMAB [Suspect]
     Active Substance: EMICIZUMAB
     Indication: Factor VIII deficiency
     Dosage: 105 MILLIGRAM, QW
     Route: 058
     Dates: start: 2021, end: 20231029
  2. ROCTAVIAN [Suspect]
     Active Substance: VALOCTOCOGENE ROXAPARVOVEC-RVOX
     Indication: Factor VIII deficiency
     Route: 065

REACTIONS (1)
  - Haemorrhage [Unknown]
